FAERS Safety Report 8323015-X (Version None)
Quarter: 2012Q2

REPORT INFORMATION
  Report Type: 
  Country: None (occurrence: None)
  Receive Date: 20120430
  Receipt Date: 20120419
  Transmission Date: 20120825
  Serious: Yes (Hospitalization, Other)
  Sender: FDA-Public Use
  Company Number: US-ELI_LILLY_AND_COMPANY-US201203004141

PATIENT
  Sex: Female
  Weight: 47.7 kg

DRUGS (4)
  1. VICODIN [Concomitant]
     Dosage: UNK, BID
  2. HIDROCLOROTIAZIDE [Concomitant]
     Indication: HYPERTENSION
  3. FORTEO [Suspect]
     Indication: OSTEOPOROSIS
     Dosage: 20 UG, QD
     Route: 065
  4. DIOVAN [Concomitant]

REACTIONS (9)
  - OSTEONECROSIS [None]
  - BACK PAIN [None]
  - BONE DISORDER [None]
  - HIP FRACTURE [None]
  - GAIT DISTURBANCE [None]
  - CHEST PAIN [None]
  - WRIST FRACTURE [None]
  - FALL [None]
  - INTENTIONAL DRUG MISUSE [None]
